FAERS Safety Report 7496448-1 (Version None)
Quarter: 2011Q2

REPORT INFORMATION
  Report Type: 
  Country: None (occurrence: None)
  Receive Date: 20110523
  Receipt Date: 20110519
  Transmission Date: 20111010
  Serious: Yes (Death)
  Sender: FDA-Public Use
  Company Number: JP-SANOFI-AVENTIS-2011SA031631

PATIENT
  Age: 72 Year
  Sex: Male
  Weight: 60 kg

DRUGS (8)
  1. HMG COA REDUCTASE INHIBITORS [Concomitant]
     Dates: start: 20020101, end: 20100905
  2. TAXOTERE [Suspect]
     Indication: BLADDER CANCER
     Dosage: ON DAY 1, ADMINISTEREDD THREE TIMES
     Route: 041
     Dates: start: 20100603, end: 20100902
  3. DEXAMETHASONE SODIUM PHOSPHATE [Concomitant]
     Indication: PREMEDICATION
     Dosage: EVERY 52 DAYS, ON ADMINISTRATION OF DOCETAXEL
     Route: 041
     Dates: start: 20100603, end: 20100902
  4. GRANISETRON HCL [Concomitant]
     Indication: PREMEDICATION
     Dosage: EVERY 52 DAYS, ON ADMINISTRATION OF DOCETAXEL
     Route: 041
     Dates: start: 20100603, end: 20100902
  5. ASPARA POTASSIUM [Concomitant]
     Indication: PROPHYLAXIS
     Route: 048
     Dates: start: 20100114, end: 20100905
  6. GEMZAR [Concomitant]
     Indication: BLADDER CANCER
     Dosage: 800 MG/M2 ON DAY 1, 8 AND 15, EVERY 52 DAYS
     Route: 041
     Dates: start: 20100603, end: 20100902
  7. RANITIDINE HYDROCHLORIDE [Concomitant]
     Indication: PREMEDICATION
     Dosage: EVERY 52 DAYS, ON ADMINISTRATION OF DOCETAXEL
     Route: 041
     Dates: start: 20100603, end: 20100902
  8. MUNOBAL [Concomitant]
     Indication: HYPERTENSION
     Dates: start: 20020101, end: 20100905

REACTIONS (1)
  - MYOCARDIAL INFARCTION [None]
